FAERS Safety Report 9524022 (Version 1)
Quarter: 2013Q3

REPORT INFORMATION
  Report Type: Spontaneous
  Country: DE (occurrence: None)
  Receive Date: 20130912
  Receipt Date: 20130912
  Transmission Date: 20140515
  Serious: Yes (Life-Threatening, Hospitalization)
  Sender: FDA-Public Use
  Company Number: FK201304117

PATIENT
  Age: 68 Year
  Sex: Female
  Weight: 68 kg

DRUGS (4)
  1. CEPHAZOLIN [Suspect]
     Indication: PRODUCT USED FOR UNKNOWN INDICATION
     Dosage: 2 GM, 1 IN 1 D, INTRAVENOUS (NOT OTHERWISE SPECIFIED)
     Route: 042
  2. MIDAZOLAM (MIDAZOLAM) (MIDZOLAM) [Concomitant]
  3. SUFENTANIL (SUFENTANIL) (SUFENTANIL) [Concomitant]
  4. PROPOFOL (PROPOFOL) (PROPOFOL) [Concomitant]

REACTIONS (1)
  - Anaphylactic reaction [None]
